FAERS Safety Report 19278379 (Version 3)
Quarter: 2021Q3

REPORT INFORMATION
  Report Type: Report from Study
  Country: None (occurrence: CO)
  Receive Date: 20210520
  Receipt Date: 20210726
  Transmission Date: 20211014
  Serious: Yes (Hospitalization, Other)
  Sender: FDA-Public Use
  Company Number: CO-ABBVIE-21K-036-3910916-00

PATIENT
  Sex: Female

DRUGS (2)
  1. HUMIRA [Suspect]
     Active Substance: ADALIMUMAB
     Indication: RHEUMATOID ARTHRITIS
     Route: 058
     Dates: end: 20210414
  2. HUMIRA [Suspect]
     Active Substance: ADALIMUMAB
     Indication: RHEUMATOID ARTHRITIS
     Route: 058
     Dates: start: 20170306

REACTIONS (20)
  - Feeling of despair [Recovering/Resolving]
  - Impaired healing [Unknown]
  - Arthralgia [Recovering/Resolving]
  - Pain in extremity [Recovering/Resolving]
  - Feeling hot [Unknown]
  - Malnutrition [Recovering/Resolving]
  - Kidney infection [Recovering/Resolving]
  - Nephritis [Recovering/Resolving]
  - Decreased appetite [Recovering/Resolving]
  - Blood glucose decreased [Recovering/Resolving]
  - Purulence [Recovering/Resolving]
  - Bone pain [Recovering/Resolving]
  - Delirium [Recovering/Resolving]
  - Mental disorder [Unknown]
  - Tremor [Recovering/Resolving]
  - Anaemia [Recovering/Resolving]
  - Dysstasia [Recovering/Resolving]
  - Hypersensitivity [Recovering/Resolving]
  - Stomatitis [Recovering/Resolving]
  - Urticaria [Recovering/Resolving]

NARRATIVE: CASE EVENT DATE: 2021
